FAERS Safety Report 8209965-3 (Version None)
Quarter: 2012Q1

REPORT INFORMATION
  Report Type: 
  Country: None (occurrence: None)
  Receive Date: 20120314
  Receipt Date: 20110418
  Transmission Date: 20120608
  Serious: No
  Sender: FDA-Public Use
  Company Number: US-ASTRAZENECA-2011SE22116

PATIENT
  Age: 51 Year
  Sex: Female
  Weight: 70.8 kg

DRUGS (5)
  1. ASPIRIN [Concomitant]
  2. DIGOXIN [Concomitant]
  3. TOPROL-XL [Suspect]
     Route: 048
  4. TOPROL-XL [Suspect]
     Indication: SUPRAVENTRICULAR TACHYCARDIA
     Route: 048
  5. SUPPLEMENT [Concomitant]

REACTIONS (14)
  - WEIGHT DECREASED [None]
  - MENTAL IMPAIRMENT [None]
  - RAYNAUD'S PHENOMENON [None]
  - GAIT DISTURBANCE [None]
  - SPEECH DISORDER [None]
  - WEIGHT INCREASED [None]
  - SENSATION OF HEAVINESS [None]
  - HYPOAESTHESIA ORAL [None]
  - HEADACHE [None]
  - HYPERTENSION [None]
  - HYPOAESTHESIA [None]
  - BALANCE DISORDER [None]
  - WRONG TECHNIQUE IN DRUG USAGE PROCESS [None]
  - BLOOD PRESSURE DECREASED [None]
